FAERS Safety Report 10219057 (Version 1)
Quarter: 2014Q2

REPORT INFORMATION
  Report Type: Spontaneous
  Country: US (occurrence: None)
  Receive Date: 20140604
  Receipt Date: 20140604
  Transmission Date: 20141212
  Serious: Yes (Life-Threatening, Hospitalization)
  Sender: FDA-Public Use
  Company Number: None

PATIENT
  Age: 48 Year
  Sex: Female
  Weight: 74.84 kg

DRUGS (1)
  1. FLAGYL [Suspect]
     Indication: HELICOBACTER INFECTION
     Dosage: 1, FOUR TIMES DAILY, TAKEN BY MOUTH?
     Route: 048
     Dates: start: 20140506, end: 20140511

REACTIONS (2)
  - Abdominal pain [None]
  - Pancreatitis [None]
